FAERS Safety Report 8910142 (Version 1)
Quarter: 2012Q4

REPORT INFORMATION
  Report Type: 
  Country: US (occurrence: US)
  Receive Date: 20121115
  Receipt Date: 20121115
  Transmission Date: 20130627
  Serious: Yes (Hospitalization)
  Sender: FDA-Public Use
  Company Number: US-AMGEN-USASP2012072822

PATIENT
  Age: 60 Year
  Sex: Female

DRUGS (1)
  1. ENBREL [Suspect]
     Indication: RHEUMATOID ARTHRITIS
     Dosage: UNK once weekly
     Route: 058
     Dates: start: 20110801, end: 201202

REACTIONS (3)
  - Hip arthroplasty [Unknown]
  - Rheumatoid arthritis [Recovered/Resolved]
  - Herpes zoster [Not Recovered/Not Resolved]
